FAERS Safety Report 6752581-0 (Version None)
Quarter: 2010Q2

REPORT INFORMATION
  Report Type: 
  Country: None (occurrence: None)
  Receive Date: 20100602
  Receipt Date: 20100521
  Transmission Date: 20101027
  Serious: Yes (Other)
  Sender: FDA-Public Use
  Company Number: PHHY2010US33491

PATIENT
  Age: 56 Year
  Sex: Female
  Weight: 58.005 kg

DRUGS (17)
  1. RECLAST [Suspect]
     Indication: OSTEOPOROSIS
     Dosage: UNK
     Route: 042
     Dates: start: 20100312
  2. CHANTIX [Suspect]
     Indication: SMOKING CESSATION THERAPY
     Dosage: 0.5 MG DAILY
     Route: 048
     Dates: start: 20100201, end: 20100315
  3. CHANTIX [Suspect]
     Indication: CHRONIC OBSTRUCTIVE PULMONARY DISEASE
  4. INSULIN LISPRO [Concomitant]
     Dosage: UNK
  5. INSULIN ASPART [Concomitant]
     Indication: DIABETES MELLITUS
  6. INSULIN GLARGINE [Concomitant]
     Indication: DIABETES MELLITUS
     Dosage: 30 UNITS
  7. GLUCOPHAGE [Concomitant]
     Indication: DIABETES MELLITUS
     Dosage: 1 G TWICE DAILY
  8. OXYCODONE [Concomitant]
     Indication: SURGERY
     Dosage: 10 MG ONE TO TWO TABLETS ONCE DAILY
  9. OXYCODONE [Concomitant]
     Indication: NERVE INJURY
  10. WELLBUTRIN [Concomitant]
     Indication: HYSTERECTOMY
     Dosage: 150 MG TWICE DAILY
  11. VITAMINS [Concomitant]
  12. METAGLIP [Concomitant]
     Dosage: UNK
  13. ADVAIR DISKUS 100/50 [Concomitant]
     Dosage: UNK
  14. PROVENTIL [Concomitant]
     Dosage: UNK
  15. LISINOPRIL [Concomitant]
     Dosage: UNK
  16. PRILOSEC [Concomitant]
     Dosage: UNK
  17. ESTRACE [Concomitant]
     Dosage: 1 MG

REACTIONS (2)
  - BLOOD GLUCOSE INCREASED [None]
  - FATIGUE [None]
